FAERS Safety Report 4446180-3 (Version None)
Quarter: 2004Q3

REPORT INFORMATION
  Report Type: 
  Country: None (occurrence: None)
  Receive Date: 20040907
  Receipt Date: 20040829
  Transmission Date: 20050211
  Serious: Yes (Death)
  Sender: FDA-Public Use
  Company Number: US-JNJFOC-20040810025

PATIENT
  Sex: Male

DRUGS (2)
  1. TYLENOL [Suspect]
  2. ALCOHOL (ETHANOL) [Suspect]

REACTIONS (1)
  - DEATH [None]
